FAERS Safety Report 23542929 (Version 1)
Quarter: 2024Q1

REPORT INFORMATION
  Report Type: Spontaneous
  Country: FR (occurrence: FR)
  Receive Date: 20240220
  Receipt Date: 20240220
  Transmission Date: 20240410
  Serious: Yes (Life-Threatening)
  Sender: FDA-Public Use
  Company Number: None

PATIENT
  Age: 53 Year
  Sex: Female

DRUGS (7)
  1. ALPRAZOLAM [Suspect]
     Active Substance: ALPRAZOLAM
     Indication: Poisoning deliberate
     Route: 048
     Dates: start: 20231208, end: 20231208
  2. ACETAMINOPHEN [Suspect]
     Active Substance: ACETAMINOPHEN
     Indication: Poisoning deliberate
     Dosage: UNKNOWN
     Route: 048
     Dates: start: 20231208, end: 20231208
  3. PAROXETINE [Suspect]
     Active Substance: PAROXETINE
     Indication: Poisoning deliberate
     Dosage: UNKNOWN, CHLORHYDRATE DE PAROXETINE ANHYDRE
     Route: 048
     Dates: start: 20231208, end: 20231208
  4. TRAMADOL HYDROCHLORIDE [Suspect]
     Active Substance: TRAMADOL HYDROCHLORIDE
     Indication: Poisoning deliberate
     Dosage: CHLORHYDRATE DE TRAMADOL
     Route: 048
     Dates: start: 20231208, end: 20231208
  5. AMOXICILLIN [Suspect]
     Active Substance: AMOXICILLIN
     Indication: Poisoning deliberate
     Dosage: UNKNOWN, AMOXICILLINE
     Route: 048
     Dates: start: 20231208, end: 20231208
  6. HYDROXYZINE HYDROCHLORIDE [Suspect]
     Active Substance: HYDROXYZINE HYDROCHLORIDE
     Indication: Poisoning deliberate
     Dosage: UNKNOWN, CHLORHYDRATE D^HYDROXYZINE
     Route: 048
     Dates: start: 20231208, end: 20231208
  7. KETOPROFEN [Suspect]
     Active Substance: KETOPROFEN
     Indication: Poisoning deliberate
     Dosage: UNKNOWN, KETOPROFENE
     Route: 048
     Dates: start: 20231208, end: 20231208

REACTIONS (3)
  - Coma [Recovered/Resolved]
  - Acute kidney injury [Recovered/Resolved]
  - Cardiogenic shock [Recovered/Resolved]

NARRATIVE: CASE EVENT DATE: 20231208
